FAERS Safety Report 6196830-9 (Version None)
Quarter: 2009Q2

REPORT INFORMATION
  Report Type: 
  Country: None (occurrence: None)
  Receive Date: 20090520
  Receipt Date: 20090511
  Transmission Date: 20091009
  Serious: Yes (Other)
  Sender: FDA-Public Use
  Company Number: IN-WATSON-2009-03358

PATIENT
  Age: 80 Year
  Sex: Male

DRUGS (7)
  1. MORPHINE SULFATE INJ [Suspect]
     Indication: CANCER PAIN
     Dosage: 15 MG, Q4H
     Route: 048
  2. MORPHINE SULFATE INJ [Suspect]
     Dosage: 5 MG, Q4H
  3. RANTIDINE (WATSON LABORATORIES) [Suspect]
     Indication: DRUG USE FOR UNKNOWN INDICATION
     Dosage: 150 MG, BID
     Route: 048
  4. AMITRIPTLINE HYDROCHLORIDE TAB [Suspect]
     Indication: DRUG USE FOR UNKNOWN INDICATION
     Dosage: 25 MG OF AMITRIPTYLINE, QHS
  5. IBUPROFEN [Concomitant]
     Indication: DRUG USE FOR UNKNOWN INDICATION
     Dosage: 400 MG, Q4H ALONG WITH MORPHINE
  6. ACETAMINOPHEN [Concomitant]
     Indication: PAIN
     Dosage: 500 MG, Q8H
     Route: 048
  7. BISACODYL [Concomitant]
     Indication: DRUG USE FOR UNKNOWN INDICATION
     Dosage: UNK

REACTIONS (2)
  - DRUG INTERACTION [None]
  - OVERDOSE [None]
